FAERS Safety Report 10246024 (Version 1)
Quarter: 2014Q2

REPORT INFORMATION
  Report Type: Spontaneous
  Country: US (occurrence: None)
  Receive Date: 20140617
  Receipt Date: 20140617
  Transmission Date: 20141212
  Serious: Yes (Life-Threatening, Hospitalization)
  Sender: FDA-Public Use
  Company Number: None

PATIENT
  Age: 86 Year
  Sex: Male
  Weight: 83.92 kg

DRUGS (5)
  1. LEXAPRO 5 MG. ESCITALOPRAM OXALATE Q23624 TABLET TEV [Suspect]
     Indication: DEPRESSION
     Route: 048
     Dates: start: 20140509, end: 20140522
  2. HEART MEDS [Concomitant]
  3. AACEX [Concomitant]
  4. POTASSIUM [Concomitant]
  5. VIT D [Concomitant]

REACTIONS (9)
  - Somnolence [None]
  - Depression [None]
  - Suicidal ideation [None]
  - Overdose [None]
  - Speech disorder [None]
  - Speech disorder [None]
  - Agitation [None]
  - Anxiety [None]
  - Abnormal dreams [None]
